FAERS Safety Report 13665210 (Version 4)
Quarter: 2017Q3

REPORT INFORMATION
  Report Type: Spontaneous
  Country: BR (occurrence: BR)
  Receive Date: 20170619
  Receipt Date: 20170718
  Transmission Date: 20171127
  Serious: Yes (Hospitalization)
  Sender: FDA-Public Use
  Company Number: BR-PFIZER INC-2017258029

PATIENT
  Age: 11 Year
  Sex: Female

DRUGS (6)
  1. AMITRIPTYLINE [Concomitant]
     Active Substance: AMITRIPTYLINE
     Dosage: UNK
     Dates: start: 201609
  2. GEODON [Suspect]
     Active Substance: ZIPRASIDONE HYDROCHLORIDE\ZIPRASIDONE MESYLATE
     Indication: AGGRESSION
     Dosage: 80 MG, 2X/DAY (1 CAPSULE IN MORNING AND 1 CAPSULE IN EVENING)
     Dates: start: 201704
  3. CARBAMAZEPINE. [Concomitant]
     Active Substance: CARBAMAZEPINE
     Dosage: UNK
     Dates: start: 2009
  4. LEPONEX [Concomitant]
     Active Substance: CLOZAPINE
     Dosage: UNK
     Dates: start: 2016
  5. RIVOTRIL [Concomitant]
     Active Substance: CLONAZEPAM
     Dosage: UNK
     Dates: start: 2009
  6. GEODON [Suspect]
     Active Substance: ZIPRASIDONE HYDROCHLORIDE\ZIPRASIDONE MESYLATE
     Indication: SCHIZOPHRENIA
     Dosage: 80 MG, 3X/DAY
     Dates: start: 2008, end: 201609

REACTIONS (9)
  - Suicidal ideation [Recovered/Resolved]
  - Aggression [Recovered/Resolved]
  - Drug administered to patient of inappropriate age [Recovered/Resolved]
  - Agitation [Recovered/Resolved]
  - Psychomotor hyperactivity [Recovered/Resolved]
  - Drug ineffective [Unknown]
  - Hallucination, auditory [Recovered/Resolved]
  - Condition aggravated [Recovered/Resolved]
  - Intentional product misuse [Unknown]

NARRATIVE: CASE EVENT DATE: 2008
